FAERS Safety Report 15777830 (Version 1)
Quarter: 2018Q4

REPORT INFORMATION
  Report Type: Spontaneous
  Country: DE (occurrence: DE)
  Receive Date: 20181231
  Receipt Date: 20181231
  Transmission Date: 20190205
  Serious: Yes (Life-Threatening, Hospitalization)
  Sender: FDA-Public Use
  Company Number: PHHY2018DE197449

PATIENT
  Age: 62 Year
  Sex: Female
  Weight: 109 kg

DRUGS (5)
  1. METOPROLOL. [Suspect]
     Active Substance: METOPROLOL
     Indication: HYPERTENSION
     Route: 048
  2. DIGITOXIN [Suspect]
     Active Substance: DIGITOXIN
     Dosage: 0.1 MG, UNK
     Route: 048
  3. DIGITOXIN [Suspect]
     Active Substance: DIGITOXIN
     Dosage: 0.07 MG, UNK
     Route: 048
  4. DIGITOXIN [Suspect]
     Active Substance: DIGITOXIN
     Indication: ATRIAL FIBRILLATION
     Route: 042
  5. MARCUMAR [Suspect]
     Active Substance: PHENPROCOUMON
     Indication: ATRIAL FIBRILLATION
     Route: 048

REACTIONS (3)
  - Dermatitis [Not Recovered/Not Resolved]
  - Rash papular [Not Recovered/Not Resolved]
  - Bacterial infection [Not Recovered/Not Resolved]

NARRATIVE: CASE EVENT DATE: 200303
